FAERS Safety Report 5372925-4 (Version None)
Quarter: 2007Q2

REPORT INFORMATION
  Report Type: 
  Country: None (occurrence: None)
  Receive Date: 20070626
  Receipt Date: 20070611
  Transmission Date: 20071010
  Serious: Yes (Death)
  Sender: FDA-Public Use
  Company Number: 157803ISR

PATIENT
  Age: 52 Year
  Sex: Female

DRUGS (15)
  1. ETOPOSIDE [Suspect]
     Indication: PSEUDOLYMPHOMA
  2. DOXORUBICIN HCL [Suspect]
     Indication: HODGKIN'S DISEASE
  3. VINCRISTINE [Suspect]
     Indication: HODGKIN'S DISEASE
  4. CYCLOPHOSPHAMIDE [Suspect]
     Indication: HODGKIN'S DISEASE
  5. PROCARBAZINE [Suspect]
     Indication: HODGKIN'S DISEASE
  6. DARBEPOETIN ALFA [Suspect]
     Dosage: (500 MCG, 1 IN 3 WK) SUBCUTANEOUS
     Route: 058
     Dates: start: 20070118
  7. BLEOMYCIN [Suspect]
     Indication: HODGKIN'S DISEASE
  8. FILGRASTIM [Concomitant]
  9. GRANISETRON [Concomitant]
  10. CALCIUM CHLORIDE DIHYDRATE [Concomitant]
  11. FOLIC ACID [Concomitant]
  12. ALLOPURINOL [Concomitant]
  13. FLUCONAZOLE [Concomitant]
  14. BACTRIM [Concomitant]
  15. PREDNISONE [Suspect]
     Indication: HODGKIN'S DISEASE

REACTIONS (1)
  - CARDIAC FAILURE [None]
